FAERS Safety Report 9102174 (Version 1)
Quarter: 2013Q1

REPORT INFORMATION
  Report Type: Spontaneous
  Country: US (occurrence: US)
  Receive Date: 20130218
  Receipt Date: 20130218
  Transmission Date: 20140127
  Serious: Yes (Death, Life-Threatening, Other)
  Sender: FDA-Public Use
  Company Number: US-COVIDIEN/TYCO HEALTHCARE/MALLINCKRODT-T201300714

PATIENT
  Age: 19 Year
  Sex: Female

DRUGS (4)
  1. FLUOXETINE [Suspect]
     Dosage: UNK
     Route: 048
  2. FLUOXETINE [Suspect]
     Dosage: 40 MG/DAY
     Route: 048
  3. ALPRAZOLAM [Suspect]
     Dosage: UNK
     Route: 048
  4. ALPRAZOLAM [Suspect]
     Dosage: 3 MG TWICE PER DAY

REACTIONS (7)
  - Completed suicide [Fatal]
  - Toxicity to various agents [Fatal]
  - Hypoxic-ischaemic encephalopathy [Fatal]
  - Cardio-respiratory arrest [Recovering/Resolving]
  - Brain death [Fatal]
  - Brain oedema [Unknown]
  - Thinking abnormal [Unknown]
